FAERS Safety Report 9103321 (Version 2)
Quarter: 2013Q2

REPORT INFORMATION
  Report Type: Report from Study
  Country: CA (occurrence: CA)
  Receive Date: 20130219
  Receipt Date: 20130422
  Transmission Date: 20140414
  Serious: Yes (Hospitalization, Other)
  Sender: FDA-Public Use
  Company Number: CA-BAYER-2013-021454

PATIENT
  Age: 63 Year
  Sex: Female

DRUGS (9)
  1. BETASERON [Suspect]
     Indication: MULTIPLE SCLEROSIS
     Dosage: UNK
     Dates: start: 19980101, end: 20130220
  2. BETASERON [Suspect]
     Indication: MULTIPLE SCLEROSIS
     Dosage: UNK
     Dates: start: 20130403
  3. AVAMYS [Concomitant]
  4. ROSUVASTATIN [Concomitant]
  5. NADOL [Concomitant]
  6. COVERSYL PLUS [Concomitant]
  7. NITRO [Concomitant]
  8. ASA [Concomitant]
  9. VITAMIN D [Concomitant]

REACTIONS (6)
  - Angina unstable [None]
  - Dyspnoea [None]
  - Chest discomfort [None]
  - Chest discomfort [None]
  - Angioplasty [None]
  - Angina unstable [Recovered/Resolved]
